FAERS Safety Report 6339175-6 (Version None)
Quarter: 2009Q3

REPORT INFORMATION
  Report Type: 
  Country: None (occurrence: None)
  Receive Date: 20090903
  Receipt Date: 20090827
  Transmission Date: 20100115
  Serious: Yes (Other)
  Sender: FDA-Public Use
  Company Number: US-JNJFOC-20090809354

PATIENT
  Sex: Male
  Weight: 64.41 kg

DRUGS (1)
  1. REMICADE [Suspect]
     Indication: CROHN'S DISEASE
     Dosage: THERAPY DATES UNSPECIFIED
     Route: 042

REACTIONS (2)
  - BASAL CELL CARCINOMA [None]
  - COLONIC STENOSIS [None]
